FAERS Safety Report 24227268 (Version 5)
Quarter: 2025Q4

REPORT INFORMATION
  Report Type: Report from Study
  Country: CN (occurrence: CN)
  Receive Date: 20240820
  Receipt Date: 20251223
  Transmission Date: 20260118
  Serious: Yes (Other)
  Sender: PFIZER
  Company Number: CN-TAKEDA-2023TUS039575

PATIENT
  Age: 57 Year
  Sex: Male
  Weight: 50 kg

DRUGS (8)
  1. BRENTUXIMAB VEDOTIN [Suspect]
     Active Substance: BRENTUXIMAB VEDOTIN
     Indication: Hodgkin^s disease
     Dosage: 50 MILLIGRAM, 3/WEEK
     Route: 041
     Dates: start: 20230330
  2. BRENTUXIMAB VEDOTIN [Suspect]
     Active Substance: BRENTUXIMAB VEDOTIN
     Dosage: 100 MILLIGRAM, 3/WEEK
     Route: 041
     Dates: start: 20240411
  3. GRANULOCYTE COLONY-STIMULATING FACTOR NOS [Suspect]
     Active Substance: GRANULOCYTE COLONY-STIMULATING FACTOR NOS
     Indication: Skin discolouration
     Dosage: 0.30 MILLIGRAM, QD
     Route: 058
     Dates: start: 20230621, end: 20230625
  4. GRANULOCYTE COLONY-STIMULATING FACTOR NOS [Suspect]
     Active Substance: GRANULOCYTE COLONY-STIMULATING FACTOR NOS
     Dosage: 0.15 MILLIGRAM EVERY NIGHT
     Route: 058
     Dates: start: 20230621, end: 20230626
  5. GLUTATHIONE [Concomitant]
     Active Substance: GLUTATHIONE
     Indication: Prophylaxis
     Dosage: 1.8 GRAM, QD
     Route: 042
     Dates: start: 20230323, end: 20230331
  6. GLUTATHIONE [Concomitant]
     Active Substance: GLUTATHIONE
     Dosage: 2.40 GRAM, QD
     Route: 041
     Dates: start: 20230621, end: 20230626
  7. FAMOTIDINE [Concomitant]
     Active Substance: FAMOTIDINE
     Indication: Prophylaxis
     Dosage: 20 MILLIGRAM, BID
     Route: 042
     Dates: start: 20230330, end: 20230331
  8. LECITHIN [Concomitant]
     Active Substance: LECITHIN
     Indication: Prophylaxis
     Dosage: 20 MILLILITER, BID
     Route: 042
     Dates: start: 20230330, end: 20230331

REACTIONS (10)
  - Myasthenia gravis [Recovered/Resolved]
  - Hypokalaemia [Recovered/Resolved]
  - Platelet count decreased [Recovered/Resolved]
  - Faecal occult blood positive [Recovered/Resolved]
  - Albumin urine present [Recovered/Resolved]
  - Blood lactate dehydrogenase increased [Recovered/Resolved]
  - Leukocytosis [Recovered/Resolved]
  - Anaemia [Recovered/Resolved]
  - Gastrointestinal infection [Recovered/Resolved]
  - Hepatic function abnormal [Recovered/Resolved]

NARRATIVE: CASE EVENT DATE: 20230419
